FAERS Safety Report 5368140-0 (Version None)
Quarter: 2007Q2

REPORT INFORMATION
  Report Type: 
  Country: None (occurrence: None)
  Receive Date: 20070620
  Receipt Date: 20070605
  Transmission Date: 20071010
  Serious: Yes (Other)
  Sender: FDA-Public Use
  Company Number: US-1163218

PATIENT
  Age: 4 Year
  Sex: Male

DRUGS (2)
  1. MYDRIACYL [Suspect]
     Indication: OPHTHALMOLOGICAL EXAMINATION
     Dosage: OPHTHALMIC
     Route: 047
  2. PROPARACAINE HYDROCHLORIDE SOLUTION [Suspect]
     Indication: OPHTHALMOLOGICAL EXAMINATION
     Dosage: OPHTHALMIC
     Route: 047

REACTIONS (4)
  - CONVULSION [None]
  - DROOLING [None]
  - EPILEPSY [None]
  - TREMOR [None]
